FAERS Safety Report 7159774-1 (Version None)
Quarter: 2010Q4

REPORT INFORMATION
  Report Type: 
  Country: None (occurrence: None)
  Receive Date: 20101214
  Receipt Date: 20101005
  Transmission Date: 20110411
  Serious: No
  Sender: FDA-Public Use
  Company Number: US-ASTRAZENECA-2010SE47059

PATIENT
  Sex: Female
  Weight: 76.7 kg

DRUGS (1)
  1. CRESTOR [Suspect]
     Route: 048
     Dates: start: 20100901

REACTIONS (3)
  - CROHN'S DISEASE [None]
  - DIVERTICULITIS [None]
  - HEPATIC STEATOSIS [None]
